FAERS Safety Report 7049321-7 (Version None)
Quarter: 2010Q4

REPORT INFORMATION
  Report Type: 
  Country: None (occurrence: None)
  Receive Date: 20101018
  Receipt Date: 20091216
  Transmission Date: 20110411
  Serious: No
  Sender: FDA-Public Use
  Company Number: A0835434A

PATIENT
  Age: 44 Year
  Sex: Female

DRUGS (6)
  1. CEFTIN [Suspect]
     Route: 048
     Dates: start: 19980101, end: 19980101
  2. LAMOTRIGINE [Suspect]
     Indication: DEPRESSION
     Dosage: 250MG TWICE PER DAY
     Route: 048
     Dates: start: 20090901
  3. SYNTHROID [Concomitant]
  4. LEXAPRO [Concomitant]
  5. CLONOPIN [Concomitant]
  6. PREVACID [Concomitant]

REACTIONS (4)
  - FLUSHING [None]
  - HEADACHE [None]
  - OEDEMA [None]
  - RASH [None]
